FAERS Safety Report 21315645 (Version 2)
Quarter: 2022Q4

REPORT INFORMATION
  Report Type: Spontaneous
  Country: AU (occurrence: AU)
  Receive Date: 20220909
  Receipt Date: 20221130
  Transmission Date: 20230113
  Serious: Yes (Hospitalization)
  Sender: FDA-Public Use
  Company Number: AU-ABBVIE-22K-008-4533765-00

PATIENT
  Age: 71 Year
  Sex: Male

DRUGS (10)
  1. ADALIMUMAB [Suspect]
     Active Substance: ADALIMUMAB
     Indication: Polychondritis
     Route: 058
  2. CYCLOSPORINE [Suspect]
     Active Substance: CYCLOSPORINE
     Indication: Polychondritis
     Route: 048
     Dates: start: 2015
  3. AZATHIOPRINE [Suspect]
     Active Substance: AZATHIOPRINE
     Indication: Polychondritis
     Route: 065
     Dates: start: 2015
  4. GOLIMUMAB [Suspect]
     Active Substance: GOLIMUMAB
     Indication: Polychondritis
     Route: 065
     Dates: start: 2015
  5. METHOTREXATE [Suspect]
     Active Substance: METHOTREXATE
     Indication: Polychondritis
     Route: 065
     Dates: start: 2015
  6. METHOTREXATE [Suspect]
     Active Substance: METHOTREXATE
     Indication: Polychondritis
     Route: 065
     Dates: start: 201903
  7. ETANERCEPT [Suspect]
     Active Substance: ETANERCEPT
     Indication: Polychondritis
     Route: 065
     Dates: start: 2015
  8. LEFLUNOMIDE [Suspect]
     Active Substance: LEFLUNOMIDE
     Indication: Polychondritis
     Route: 065
     Dates: start: 201903
  9. PREDNISOLONE [Suspect]
     Active Substance: PREDNISOLONE
     Indication: Product used for unknown indication
     Route: 065
     Dates: start: 2021
  10. PREDNISOLONE [Suspect]
     Active Substance: PREDNISOLONE
     Indication: Product used for unknown indication
     Route: 065
     Dates: start: 2019

REACTIONS (10)
  - Lung infiltration [Unknown]
  - Skin lesion [Unknown]
  - Off label use [Unknown]
  - Pancytopenia [Unknown]
  - Pyrexia [Unknown]
  - Nocardiosis [Unknown]
  - Rash [Unknown]
  - Night sweats [Unknown]
  - Eye inflammation [Recovered/Resolved]
  - Fatigue [Unknown]

NARRATIVE: CASE EVENT DATE: 20180101
